FAERS Safety Report 10418941 (Version 2)
Quarter: 2014Q3

REPORT INFORMATION
  Report Type: Spontaneous
  Country: IT (occurrence: IT)
  Receive Date: 20140829
  Receipt Date: 20140910
  Transmission Date: 20150326
  Serious: Yes (Hospitalization)
  Sender: FDA-Public Use
  Company Number: PHHY2014IT105557

PATIENT
  Sex: Male

DRUGS (7)
  1. BISOPROLOL [Suspect]
     Active Substance: BISOPROLOL
     Indication: INTENTIONAL SELF-INJURY
     Dosage: 4.5 MG, ONCE/SINGLE
     Route: 048
     Dates: start: 20130921, end: 20130921
  2. KEPPRA [Suspect]
     Active Substance: LEVETIRACETAM
     Indication: INTENTIONAL SELF-INJURY
     Dosage: 10 DF, ONCE/SINGLE
     Route: 048
     Dates: start: 20130921, end: 20130921
  3. FRISIUM [Suspect]
     Active Substance: CLOBAZAM
     Indication: INTENTIONAL SELF-INJURY
     Dosage: 10 DF, ONCE/SINGLE
     Route: 048
     Dates: start: 20130921, end: 20130921
  4. LISINOPRIL. [Suspect]
     Active Substance: LISINOPRIL
     Indication: INTENTIONAL SELF-INJURY
     Dosage: 65 MG, ONCE/SINGLE
     Route: 048
     Dates: start: 20130921, end: 20130921
  5. AGGRENOX [Suspect]
     Active Substance: ASPIRIN\DIPYRIDAMOLE
     Indication: INTENTIONAL SELF-INJURY
     Dosage: 60 DF, ONCE/SINGLE
     Route: 048
     Dates: start: 20130921, end: 20130921
  6. ZARELIS [Suspect]
     Active Substance: VENLAFAXINE HYDROCHLORIDE
     Indication: INTENTIONAL SELF-INJURY
     Dosage: 10 DF, ONCE/SINGLE
     Route: 048
     Dates: start: 20130921, end: 20130921
  7. FINASTERIDE. [Suspect]
     Active Substance: FINASTERIDE
     Indication: INTENTIONAL SELF-INJURY
     Dosage: 8 DF, ONCE/SINGLE
     Route: 048
     Dates: start: 20130921, end: 20130921

REACTIONS (3)
  - Loss of consciousness [Recovering/Resolving]
  - Vomiting [Recovering/Resolving]
  - Drug abuse [Recovering/Resolving]

NARRATIVE: CASE EVENT DATE: 20130921
